FAERS Safety Report 4429936-2 (Version None)
Quarter: 2004Q3

REPORT INFORMATION
  Report Type: 
  Country: None (occurrence: None)
  Receive Date: 20040817
  Receipt Date: 20040817
  Transmission Date: 20050211
  Serious: Yes (Other)
  Sender: FDA-Public Use
  Company Number: None

PATIENT
  Age: 45 Year
  Sex: Female
  Weight: 61.2356 kg

DRUGS (1)
  1. COSMOPLAST [Suspect]
     Indication: SKIN COSMETIC PROCEDURE
     Dosage: INTRADERMAL
     Route: 023
     Dates: start: 20040303

REACTIONS (1)
  - INJECTION SITE ERYTHEMA [None]
